FAERS Safety Report 9694298 (Version 1)
Quarter: 2013Q4

REPORT INFORMATION
  Report Type: Spontaneous
  Country: US (occurrence: US)
  Receive Date: 20131118
  Receipt Date: 20131118
  Transmission Date: 20140711
  Serious: No
  Sender: FDA-Public Use
  Company Number: US-GILEAD-2007-0013108

PATIENT
  Age: 60 Year
  Sex: Female
  Weight: 71.21 kg

DRUGS (9)
  1. LETAIRIS [Suspect]
     Route: 048
     Dates: start: 20070807
  2. ADVAIR [Concomitant]
     Indication: DYSPNOEA
     Route: 048
     Dates: start: 2004
  3. BUMEX [Concomitant]
     Indication: OEDEMA
     Route: 048
  4. AMAREL [Concomitant]
     Indication: DIABETES MELLITUS
     Route: 048
     Dates: start: 20070226
  5. AVAPRO [Concomitant]
     Indication: HYPERTENSION
     Route: 048
     Dates: start: 2002
  6. PREDNISONE [Concomitant]
     Indication: SARCOIDOSIS
     Dates: start: 20050529
  7. SYNTHROID [Concomitant]
     Indication: HYPOTHYROIDISM
     Route: 048
     Dates: start: 20050529
  8. FOSAMAX [Concomitant]
     Indication: OSTEOPOROSIS
     Route: 048
     Dates: start: 20070724
  9. PROTONIX [Concomitant]
     Indication: GASTROOESOPHAGEAL REFLUX DISEASE
     Route: 048
     Dates: start: 2001

REACTIONS (2)
  - Constipation [None]
  - Dyspnoea [None]
